FAERS Safety Report 5547211-X (Version None)
Quarter: 2007Q4

REPORT INFORMATION
  Report Type: 
  Country: None (occurrence: None)
  Receive Date: 20071211
  Receipt Date: 20071129
  Transmission Date: 20080405
  Serious: Yes (Hospitalization, Congenital Anomaly)
  Sender: FDA-Public Use
  Company Number: A0661739A

PATIENT
  Sex: Male
  Weight: 3.5 kg

DRUGS (3)
  1. PAXIL CR [Suspect]
     Indication: DEPRESSION
  2. PHENERGAN HCL [Concomitant]
     Dates: start: 20050401
  3. INTRAVENOUS FLUIDS [Concomitant]
     Dates: start: 20050401

REACTIONS (22)
  - AORTIC VALVE INCOMPETENCE [None]
  - ATRIAL SEPTAL DEFECT [None]
  - CARDIAC FAILURE CONGESTIVE [None]
  - CARDIAC MURMUR [None]
  - CARDIOMEGALY [None]
  - CONGENITAL ANOMALY [None]
  - CONGENITAL AORTIC ATRESIA [None]
  - CYANOSIS [None]
  - DRUG EXPOSURE DURING PREGNANCY [None]
  - FLUID RETENTION [None]
  - FOETAL MACROSOMIA [None]
  - GENERALISED OEDEMA [None]
  - HYPOPLASTIC LEFT HEART SYNDROME [None]
  - MITRAL VALVE DISEASE [None]
  - MITRAL VALVE INCOMPETENCE [None]
  - PATENT DUCTUS ARTERIOSUS [None]
  - PNEUMOTHORAX [None]
  - PREMATURE BABY [None]
  - RIGHT VENTRICULAR FAILURE [None]
  - SWELLING [None]
  - TRICUSPID VALVE INCOMPETENCE [None]
  - VENTRICULAR DYSFUNCTION [None]
